FAERS Safety Report 8084405-6 (Version None)
Quarter: 2012Q1

REPORT INFORMATION
  Report Type: 
  Country: None (occurrence: None)
  Receive Date: 20120128
  Receipt Date: 20110204
  Transmission Date: 20120608
  Serious: No
  Sender: FDA-Public Use
  Company Number: US-ABBOTT-11P-163-0703687-00

PATIENT
  Sex: Female
  Weight: 55.388 kg

DRUGS (4)
  1. PREDNISONE TAB [Concomitant]
     Indication: RHEUMATOID ARTHRITIS
  2. HUMIRA [Suspect]
     Indication: RHEUMATOID ARTHRITIS
     Dates: start: 20101101
  3. METHIMAZOLE [Concomitant]
     Indication: HYPERTHYROIDISM
  4. METHOTREXATE [Concomitant]
     Indication: RHEUMATOID ARTHRITIS

REACTIONS (8)
  - CHEST PAIN [None]
  - INJECTION SITE RASH [None]
  - PARAESTHESIA [None]
  - NIGHT SWEATS [None]
  - HYPOAESTHESIA [None]
  - DIZZINESS [None]
  - OROPHARYNGEAL DISCOMFORT [None]
  - HOT FLUSH [None]
